FAERS Safety Report 9683583 (Version 1)
Quarter: 2013Q4

REPORT INFORMATION
  Report Type: Spontaneous
  Country: US (occurrence: US)
  Receive Date: 20131112
  Receipt Date: 20131112
  Transmission Date: 20140711
  Serious: Yes (Death)
  Sender: FDA-Public Use
  Company Number: US-BAYER-2013-136232

PATIENT
  Age: 20 Year
  Sex: Female
  Weight: 69.84 kg

DRUGS (2)
  1. BEYAZ [Suspect]
  2. YAZ [Suspect]

REACTIONS (1)
  - Pulmonary embolism [Fatal]
